FAERS Safety Report 24588452 (Version 3)
Quarter: 2024Q4

REPORT INFORMATION
  Report Type: Spontaneous
  Country: US (occurrence: US)
  Receive Date: 20241107
  Receipt Date: 20241209
  Transmission Date: 20250114
  Serious: No
  Sender: LEO PHARM
  Company Number: US-LEO Pharma-374700

PATIENT
  Age: 47 Year
  Sex: Male

DRUGS (1)
  1. ADBRY [Suspect]
     Active Substance: TRALOKINUMAB-LDRM
     Indication: Dermatitis atopic
     Dosage: TREATMENT REPORTED AS ONGOING
     Dates: start: 202307

REACTIONS (3)
  - Erythema [Unknown]
  - Pruritus [Unknown]
  - Drug ineffective [Unknown]
